FAERS Safety Report 8990242 (Version 1)
Quarter: 2012Q4

REPORT INFORMATION
  Report Type: 
  Country: IL (occurrence: IL)
  Receive Date: 20121228
  Receipt Date: 20121228
  Transmission Date: 20130627
  Serious: Yes (Other)
  Sender: FDA-Public Use
  Company Number: IL-BRISTOL-MYERS SQUIBB COMPANY-17221797

PATIENT
  Age: 44 Year
  Sex: Male

DRUGS (2)
  1. CARBIDOPA + LEVODOPA [Suspect]
     Indication: PARKINSON^S DISEASE
  2. ROPINIROLE [Suspect]
     Indication: PARKINSON^S DISEASE

REACTIONS (3)
  - Compulsive sexual behaviour [Recovered/Resolved]
  - Dopamine dysregulation syndrome [Unknown]
  - Overdose [Unknown]
